FAERS Safety Report 24255267 (Version 2)
Quarter: 2024Q4

REPORT INFORMATION
  Report Type: Spontaneous
  Country: JP (occurrence: JP)
  Receive Date: 20240827
  Receipt Date: 20241004
  Transmission Date: 20250114
  Serious: No
  Sender: DAIICHI
  Company Number: JP-DSJP-DSJ-2024-141702

PATIENT
  Age: 70 Year
  Sex: Female
  Weight: 54.7 kg

DRUGS (1)
  1. EDOXABAN TOSYLATE [Suspect]
     Active Substance: EDOXABAN TOSYLATE
     Indication: Atrial fibrillation
     Dosage: 15 MG
     Route: 065

REACTIONS (2)
  - Creatinine renal clearance decreased [Unknown]
  - Anaemia [Unknown]
